FAERS Safety Report 5094262-8 (Version None)
Quarter: 2006Q3

REPORT INFORMATION
  Report Type: 
  Country: None (occurrence: None)
  Receive Date: 20060831
  Receipt Date: 20060808
  Transmission Date: 20061208
  Serious: Yes (Hospitalization)
  Sender: FDA-Public Use
  Company Number: FR-GLAXOSMITHKLINE-B0433623A

PATIENT
  Age: 82 Year
  Sex: Male

DRUGS (7)
  1. AUGMENTIN [Suspect]
     Route: 048
     Dates: start: 20050510, end: 20050625
  2. INSULATARD NPH HUMAN [Concomitant]
     Route: 065
  3. KARDEGIC 160 [Concomitant]
     Route: 065
  4. AMLODIPINE BESYLATE [Concomitant]
     Route: 065
  5. HYPERIUM [Concomitant]
     Route: 065
  6. BIPRETERAX [Concomitant]
     Route: 065
  7. EFFERALGAN CODEINE [Concomitant]
     Route: 065

REACTIONS (9)
  - ABDOMINAL PAIN [None]
  - ALANINE AMINOTRANSFERASE INCREASED [None]
  - ASPARTATE AMINOTRANSFERASE INCREASED [None]
  - ASTHENIA [None]
  - BLOOD BILIRUBIN INCREASED [None]
  - CHOLECYSTECTOMY [None]
  - HEPATIC CIRRHOSIS [None]
  - HEPATITIS CHOLESTATIC [None]
  - JAUNDICE [None]
